FAERS Safety Report 15956423 (Version 9)
Quarter: 2022Q4

REPORT INFORMATION
  Report Type: Spontaneous
  Country: US (occurrence: US)
  Receive Date: 20190213
  Receipt Date: 20221221
  Transmission Date: 20230113
  Serious: Yes (Other)
  Sender: FDA-Public Use
  Company Number: US-PFIZER INC-2019060114

PATIENT
  Age: 66 Year
  Sex: Male

DRUGS (2)
  1. XELJANZ XR [Suspect]
     Active Substance: TOFACITINIB CITRATE
     Dosage: 11 MG, UNK
  2. XELJANZ XR [Suspect]
     Active Substance: TOFACITINIB CITRATE
     Dosage: 11 MG, ALTERNATE DAY

REACTIONS (6)
  - Cerebrovascular accident [Unknown]
  - Limb discomfort [Unknown]
  - Memory impairment [Unknown]
  - Tremor [Unknown]
  - Intentional product misuse [Unknown]
  - Cardiac disorder [Unknown]
